FAERS Safety Report 21689711 (Version 1)
Quarter: 2022Q4

REPORT INFORMATION
  Report Type: Report from Study
  Country: US (occurrence: US)
  Receive Date: 20221206
  Receipt Date: 20221206
  Transmission Date: 20230113
  Serious: Yes (Other)
  Sender: FDA-Public Use
  Company Number: US-BRISTOL-MYERS SQUIBB COMPANY-2022-016586

PATIENT
  Age: 62 Year
  Sex: Female
  Weight: 81.65 kg

DRUGS (132)
  1. REVLIMID [Suspect]
     Active Substance: LENALIDOMIDE
     Indication: Plasma cell myeloma
     Dosage: TAKE 1 CAPSULE DAILY ON DAYS 1 THROUGH 21 DAYS OF EACH 28 DAYS CYCLE  TAKE WHOLE WITH WATER AT THE S
     Route: 048
     Dates: start: 2011, end: 20210116
  2. REVLIMID [Suspect]
     Active Substance: LENALIDOMIDE
     Dosage: FREQ: DAILY 21 DAYS
     Route: 048
  3. REVLIMID [Suspect]
     Active Substance: LENALIDOMIDE
     Dosage: DAYS 1-21 EACH 28 DAY CYCLE?21/BTL
     Route: 048
  4. REVLIMID [Suspect]
     Active Substance: LENALIDOMIDE
     Route: 048
  5. RECTIV [Concomitant]
     Active Substance: NITROGLYCERIN
     Indication: Product used for unknown indication
     Dosage: 0.4 W/W OINTMENT
     Route: 065
  6. ALPHA LIPOIC ACID [Concomitant]
     Active Substance: .ALPHA.-LIPOIC ACID
     Indication: Product used for unknown indication
     Route: 065
  7. LOPERAMIDE HYDROCHLORIDE [Concomitant]
     Active Substance: LOPERAMIDE HYDROCHLORIDE
     Indication: Product used for unknown indication
     Dosage: 2.5MG -0.25 MG
     Route: 065
  8. DEXAMETHASONE [Concomitant]
     Active Substance: DEXAMETHASONE
     Indication: Product used for unknown indication
     Dosage: 40 MG WEEKLY
     Route: 065
  9. DEXAMETHASONE [Concomitant]
     Active Substance: DEXAMETHASONE
     Dosage: 0.5 MG/ML
  10. ASPIRIN [Concomitant]
     Active Substance: ASPIRIN
     Indication: Product used for unknown indication
     Dosage: LOW DOSE ASPIRIN EC
     Route: 065
  11. ASPIRIN [Concomitant]
     Active Substance: ASPIRIN
  12. ASPIRIN [Concomitant]
     Active Substance: ASPIRIN
  13. ASPIRIN [Concomitant]
     Active Substance: ASPIRIN
  14. ASPIRIN [Concomitant]
     Active Substance: ASPIRIN
  15. ASPIRIN [Concomitant]
     Active Substance: ASPIRIN
  16. ASPIRIN [Concomitant]
     Active Substance: ASPIRIN
  17. ASPIRIN [Concomitant]
     Active Substance: ASPIRIN
  18. ASPIRIN [Concomitant]
     Active Substance: ASPIRIN
  19. ASPIRIN [Concomitant]
     Active Substance: ASPIRIN
  20. ASPIRIN [Concomitant]
     Active Substance: ASPIRIN
  21. ASPIRIN [Concomitant]
     Active Substance: ASPIRIN
  22. ASPIRIN [Concomitant]
     Active Substance: ASPIRIN
  23. TUMS [Concomitant]
     Active Substance: CALCIUM CARBONATE
     Indication: Product used for unknown indication
     Dosage: 200(500)MG
     Route: 065
  24. TUMS [Concomitant]
     Active Substance: CALCIUM CARBONATE
  25. TUMS [Concomitant]
     Active Substance: CALCIUM CARBONATE
  26. TUMS [Concomitant]
     Active Substance: CALCIUM CARBONATE
  27. TUMS [Concomitant]
     Active Substance: CALCIUM CARBONATE
  28. TUMS [Concomitant]
     Active Substance: CALCIUM CARBONATE
  29. TUMS [Concomitant]
     Active Substance: CALCIUM CARBONATE
  30. TUMS [Concomitant]
     Active Substance: CALCIUM CARBONATE
  31. TUMS [Concomitant]
     Active Substance: CALCIUM CARBONATE
  32. TUMS [Concomitant]
     Active Substance: CALCIUM CARBONATE
  33. TUMS [Concomitant]
     Active Substance: CALCIUM CARBONATE
  34. TUMS [Concomitant]
     Active Substance: CALCIUM CARBONATE
  35. TUMS [Concomitant]
     Active Substance: CALCIUM CARBONATE
  36. IBUPROFEN [Concomitant]
     Active Substance: IBUPROFEN
     Indication: Product used for unknown indication
     Route: 065
  37. IBUPROFEN [Concomitant]
     Active Substance: IBUPROFEN
  38. IBUPROFEN [Concomitant]
     Active Substance: IBUPROFEN
  39. IBUPROFEN [Concomitant]
     Active Substance: IBUPROFEN
  40. IBUPROFEN [Concomitant]
     Active Substance: IBUPROFEN
  41. IBUPROFEN [Concomitant]
     Active Substance: IBUPROFEN
  42. IBUPROFEN [Concomitant]
     Active Substance: IBUPROFEN
  43. IBUPROFEN [Concomitant]
     Active Substance: IBUPROFEN
  44. IBUPROFEN [Concomitant]
     Active Substance: IBUPROFEN
  45. IBUPROFEN [Concomitant]
     Active Substance: IBUPROFEN
  46. IBUPROFEN [Concomitant]
     Active Substance: IBUPROFEN
  47. IBUPROFEN [Concomitant]
     Active Substance: IBUPROFEN
  48. IBUPROFEN [Concomitant]
     Active Substance: IBUPROFEN
  49. ACYCLOVIR [Concomitant]
     Active Substance: ACYCLOVIR
     Indication: Product used for unknown indication
     Route: 065
  50. ACYCLOVIR [Concomitant]
     Active Substance: ACYCLOVIR
  51. ACYCLOVIR [Concomitant]
     Active Substance: ACYCLOVIR
  52. ACYCLOVIR [Concomitant]
     Active Substance: ACYCLOVIR
  53. ACYCLOVIR [Concomitant]
     Active Substance: ACYCLOVIR
  54. ACYCLOVIR [Concomitant]
     Active Substance: ACYCLOVIR
  55. ACYCLOVIR [Concomitant]
     Active Substance: ACYCLOVIR
  56. ACYCLOVIR [Concomitant]
     Active Substance: ACYCLOVIR
  57. ACYCLOVIR [Concomitant]
     Active Substance: ACYCLOVIR
  58. ACYCLOVIR [Concomitant]
     Active Substance: ACYCLOVIR
  59. ACYCLOVIR [Concomitant]
     Active Substance: ACYCLOVIR
  60. ACYCLOVIR [Concomitant]
     Active Substance: ACYCLOVIR
  61. VITAMIN D3 [Concomitant]
     Active Substance: CHOLECALCIFEROL
     Indication: Product used for unknown indication
     Dosage: 50 MCG
     Route: 065
  62. VITAMIN D3 [Concomitant]
     Active Substance: CHOLECALCIFEROL
  63. VITAMIN D3 [Concomitant]
     Active Substance: CHOLECALCIFEROL
  64. VITAMIN D3 [Concomitant]
     Active Substance: CHOLECALCIFEROL
  65. VITAMIN D3 [Concomitant]
     Active Substance: CHOLECALCIFEROL
  66. VITAMIN D3 [Concomitant]
     Active Substance: CHOLECALCIFEROL
  67. VITAMIN D3 [Concomitant]
     Active Substance: CHOLECALCIFEROL
  68. VITAMIN D3 [Concomitant]
     Active Substance: CHOLECALCIFEROL
  69. VITAMIN D3 [Concomitant]
     Active Substance: CHOLECALCIFEROL
  70. VITAMIN D3 [Concomitant]
     Active Substance: CHOLECALCIFEROL
  71. VITAMIN D3 [Concomitant]
     Active Substance: CHOLECALCIFEROL
  72. VITAMIN D3 [Concomitant]
     Active Substance: CHOLECALCIFEROL
  73. AMLODIPINE BESYLATE [Concomitant]
     Active Substance: AMLODIPINE BESYLATE
     Indication: Product used for unknown indication
     Route: 065
  74. AMLODIPINE BESYLATE [Concomitant]
     Active Substance: AMLODIPINE BESYLATE
  75. AMLODIPINE BESYLATE [Concomitant]
     Active Substance: AMLODIPINE BESYLATE
  76. AMLODIPINE BESYLATE [Concomitant]
     Active Substance: AMLODIPINE BESYLATE
  77. AMLODIPINE BESYLATE [Concomitant]
     Active Substance: AMLODIPINE BESYLATE
  78. AMLODIPINE BESYLATE [Concomitant]
     Active Substance: AMLODIPINE BESYLATE
  79. AMLODIPINE BESYLATE [Concomitant]
     Active Substance: AMLODIPINE BESYLATE
  80. AMLODIPINE BESYLATE [Concomitant]
     Active Substance: AMLODIPINE BESYLATE
  81. AMLODIPINE BESYLATE [Concomitant]
     Active Substance: AMLODIPINE BESYLATE
  82. AMLODIPINE BESYLATE [Concomitant]
     Active Substance: AMLODIPINE BESYLATE
  83. AMLODIPINE BESYLATE [Concomitant]
     Active Substance: AMLODIPINE BESYLATE
  84. AMLODIPINE BESYLATE [Concomitant]
     Active Substance: AMLODIPINE BESYLATE
  85. ALENDRONATE SODIUM [Concomitant]
     Active Substance: ALENDRONATE SODIUM
     Indication: Product used for unknown indication
     Route: 065
  86. ALENDRONATE SODIUM [Concomitant]
     Active Substance: ALENDRONATE SODIUM
  87. ALENDRONATE SODIUM [Concomitant]
     Active Substance: ALENDRONATE SODIUM
  88. ALENDRONATE SODIUM [Concomitant]
     Active Substance: ALENDRONATE SODIUM
  89. ALENDRONATE SODIUM [Concomitant]
     Active Substance: ALENDRONATE SODIUM
  90. ALENDRONATE SODIUM [Concomitant]
     Active Substance: ALENDRONATE SODIUM
  91. ALENDRONATE SODIUM [Concomitant]
     Active Substance: ALENDRONATE SODIUM
  92. ALENDRONATE SODIUM [Concomitant]
     Active Substance: ALENDRONATE SODIUM
  93. ALENDRONATE SODIUM [Concomitant]
     Active Substance: ALENDRONATE SODIUM
  94. ALENDRONATE SODIUM [Concomitant]
     Active Substance: ALENDRONATE SODIUM
  95. ALENDRONATE SODIUM [Concomitant]
     Active Substance: ALENDRONATE SODIUM
  96. ALENDRONATE SODIUM [Concomitant]
     Active Substance: ALENDRONATE SODIUM
  97. VITAMINS NOS [Concomitant]
     Active Substance: VITAMINS
     Indication: Product used for unknown indication
     Route: 065
  98. VITAMINS NOS [Concomitant]
     Active Substance: VITAMINS
  99. VITAMINS NOS [Concomitant]
     Active Substance: VITAMINS
  100. VITAMINS NOS [Concomitant]
     Active Substance: VITAMINS
  101. VITAMINS NOS [Concomitant]
     Active Substance: VITAMINS
  102. VITAMINS NOS [Concomitant]
     Active Substance: VITAMINS
  103. VITAMINS NOS [Concomitant]
     Active Substance: VITAMINS
  104. VITAMINS NOS [Concomitant]
     Active Substance: VITAMINS
  105. VITAMINS NOS [Concomitant]
     Active Substance: VITAMINS
  106. VITAMINS NOS [Concomitant]
     Active Substance: VITAMINS
  107. VITAMINS NOS [Concomitant]
     Active Substance: VITAMINS
  108. VITAMINS NOS [Concomitant]
     Active Substance: VITAMINS
  109. KYPROLIS [Concomitant]
     Active Substance: CARFILZOMIB
     Indication: Product used for unknown indication
     Dosage: 3 WEEKS ON 1 WEEK OFF
     Route: 065
  110. KYPROLIS [Concomitant]
     Active Substance: CARFILZOMIB
  111. KYPROLIS [Concomitant]
     Active Substance: CARFILZOMIB
  112. KYPROLIS [Concomitant]
     Active Substance: CARFILZOMIB
  113. KYPROLIS [Concomitant]
     Active Substance: CARFILZOMIB
  114. KYPROLIS [Concomitant]
     Active Substance: CARFILZOMIB
  115. KYPROLIS [Concomitant]
     Active Substance: CARFILZOMIB
  116. KYPROLIS [Concomitant]
     Active Substance: CARFILZOMIB
  117. KYPROLIS [Concomitant]
     Active Substance: CARFILZOMIB
  118. KYPROLIS [Concomitant]
     Active Substance: CARFILZOMIB
  119. KYPROLIS [Concomitant]
     Active Substance: CARFILZOMIB
  120. KYPROLIS [Concomitant]
     Active Substance: CARFILZOMIB
  121. ATORVASTATIN CALCIUM [Concomitant]
     Active Substance: ATORVASTATIN CALCIUM
  122. VITAMIN C [Concomitant]
     Active Substance: ASCORBIC ACID
     Indication: Product used for unknown indication
     Route: 065
  123. DARZALEX [Concomitant]
     Active Substance: DARATUMUMAB
     Indication: Product used for unknown indication
     Dosage: 100 MG/5 ML VIAL
     Route: 065
  124. ATROPINE\DIPHENOXYLATE [Concomitant]
     Active Substance: ATROPINE\DIPHENOXYLATE
     Indication: Product used for unknown indication
     Dosage: 100 MG/5 ML VIAL
     Route: 065
  125. BENADRYL ALLERGY [Concomitant]
     Active Substance: DIPHENHYDRAMINE HYDROCHLORIDE
     Indication: Product used for unknown indication
     Dosage: 100 MG/5 ML VIAL
     Route: 065
  126. EXCEDRIN EXTRA STRENGTH [Concomitant]
     Active Substance: ACETAMINOPHEN\ASPIRIN\CAFFEINE
     Indication: Product used for unknown indication
     Dosage: 100 MG/5 ML VIAL
     Route: 065
  127. POTASSIUM [Concomitant]
     Active Substance: POTASSIUM
     Indication: Product used for unknown indication
     Dosage: 100 MG/5 ML VIAL
     Route: 065
  128. PYRIDOXINE [Concomitant]
     Active Substance: PYRIDOXINE
     Indication: Product used for unknown indication
     Dosage: 100 MG/5 ML VIAL
     Route: 065
  129. BRIMONIDINE TARTRATE [Concomitant]
     Active Substance: BRIMONIDINE TARTRATE
     Indication: Product used for unknown indication
     Dosage: 100 MG/5 ML VIAL
     Route: 065
  130. LATANOPROST;TIMOLOL [Concomitant]
     Indication: Product used for unknown indication
     Dosage: 100 MG/5 ML VIAL
     Route: 065
  131. ZINC [Concomitant]
     Active Substance: ZINC
     Indication: Product used for unknown indication
     Dosage: 100 MG/5 ML VIAL
     Route: 065
  132. NINLARO [Concomitant]
     Active Substance: IXAZOMIB CITRATE
     Indication: Product used for unknown indication
     Dosage: 100 MG/5 ML VIAL
     Route: 065

REACTIONS (7)
  - Cough [Unknown]
  - Diarrhoea [Unknown]
  - Seasonal allergy [Not Recovered/Not Resolved]
  - Platelet count decreased [Unknown]
  - Skin cancer [Unknown]
  - Infection [Unknown]
  - Sinusitis [Recovering/Resolving]

NARRATIVE: CASE EVENT DATE: 20210116
